FAERS Safety Report 17266392 (Version 10)
Quarter: 2022Q3

REPORT INFORMATION
  Report Type: Report from Study
  Country: DE (occurrence: DE)
  Receive Date: 20200114
  Receipt Date: 20220905
  Transmission Date: 20221027
  Serious: Yes (Death, Hospitalization)
  Sender: FDA-Public Use
  Company Number: NVSC2019DE076849

PATIENT
  Age: 72 Year
  Sex: Male
  Weight: 79 kg

DRUGS (24)
  1. PEMETREXED DISODIUM [Suspect]
     Active Substance: PEMETREXED DISODIUM
     Indication: Non-small cell lung cancer
     Dosage: 1040 MG
     Route: 042
     Dates: start: 20191008
  2. PLACEBO [Suspect]
     Active Substance: UNSPECIFIED INGREDIENT
     Indication: Non-small cell lung cancer
     Dosage: UNK
     Route: 058
     Dates: start: 20191008
  3. PEMBROLIZUMAB [Suspect]
     Active Substance: PEMBROLIZUMAB
     Indication: Non-small cell lung cancer
     Dosage: 200 MG
     Route: 042
     Dates: start: 20191008
  4. ASPIRIN [Concomitant]
     Active Substance: ASPIRIN
     Indication: Hypertension
     Dosage: UNK
     Route: 065
     Dates: start: 2010
  5. ALOXI [Concomitant]
     Active Substance: PALONOSETRON HYDROCHLORIDE
     Indication: Nausea
     Dosage: UNK
     Route: 065
     Dates: start: 20191029
  6. HYDROCORTISONE [Concomitant]
     Active Substance: HYDROCORTISONE
     Indication: Pustule
     Dosage: UNK
     Route: 065
     Dates: start: 20191029
  7. ACETAMINOPHEN [Concomitant]
     Active Substance: ACETAMINOPHEN
     Indication: Non-small cell lung cancer
     Route: 065
  8. METAMIZOL [Concomitant]
     Active Substance: METAMIZOLE SODIUM
     Indication: Arthralgia
     Dosage: UNK
     Route: 065
     Dates: start: 20191120
  9. ARANESP [Concomitant]
     Active Substance: DARBEPOETIN ALFA
     Indication: Anaemia
     Dosage: UNK
     Route: 065
     Dates: start: 20191203, end: 20191203
  10. ATORVASTATIN [Concomitant]
     Active Substance: ATORVASTATIN
     Indication: Dyslipidaemia
     Dosage: UNK
     Route: 065
     Dates: start: 2010
  11. FILGRASTIM [Concomitant]
     Active Substance: FILGRASTIM
     Indication: Leukopenia
     Dosage: UNK
     Route: 065
     Dates: start: 201912, end: 201912
  12. AMINO ACIDS\DEXTROSE\ELECTROLYTES NOS [Concomitant]
     Active Substance: AMINO ACIDS\DEXTROSE\ELECTROLYTES NOS
     Indication: Dehydration
     Dosage: UNK
     Route: 065
     Dates: start: 201912
  13. CLOBETASOL PROPIONATE [Concomitant]
     Active Substance: CLOBETASOL PROPIONATE
     Indication: Toxic epidermal necrolysis
     Dosage: UNK
     Route: 065
     Dates: start: 20191220
  14. ALLERGICA [Concomitant]
     Indication: Toxic epidermal necrolysis
     Dosage: UNK
     Route: 065
     Dates: start: 201912
  15. PREDNISOLONE [Concomitant]
     Active Substance: PREDNISOLONE
     Indication: Toxic epidermal necrolysis
     Dosage: UNK
     Route: 065
     Dates: start: 20191220, end: 20191222
  16. INDAPAMIDE\PERINDOPRIL [Concomitant]
     Active Substance: INDAPAMIDE\PERINDOPRIL
     Indication: Hypertension
     Dosage: UNK
     Route: 065
     Dates: start: 2000
  17. OSSOFORTIN [Concomitant]
     Indication: Non-small cell lung cancer
     Dosage: UNK
     Route: 065
     Dates: start: 201909
  18. OSSOFORTIN [Concomitant]
     Indication: Hypocalcaemia
  19. MCP [Concomitant]
     Active Substance: METOCLOPRAMIDE HYDROCHLORIDE
     Indication: Prophylaxis
     Dosage: UNK
     Route: 065
     Dates: start: 20191008
  20. FOLATE SODIUM [Concomitant]
     Active Substance: FOLATE SODIUM
     Indication: Prophylaxis
     Dosage: UNK
     Route: 065
     Dates: start: 20191008
  21. CHOLECALCIFEROL [Concomitant]
     Active Substance: CHOLECALCIFEROL
     Indication: General physical condition
     Dosage: UNK
     Route: 065
     Dates: start: 2018
  22. AMPHO-MORONAL [Concomitant]
     Active Substance: AMPHOTERICIN B
     Indication: Stomatitis
     Dosage: UNK
     Route: 065
     Dates: start: 20191218
  23. UNSPECIFIED INGREDIENT [Concomitant]
     Active Substance: UNSPECIFIED INGREDIENT
     Indication: Dehydration
     Dosage: UNK
     Route: 042
     Dates: start: 20191218
  24. CALCIUM [Concomitant]
     Active Substance: CALCIUM
     Indication: Hypocalcaemia
     Dosage: UNK
     Route: 065
     Dates: start: 20191218

REACTIONS (3)
  - Neutropenic sepsis [Fatal]
  - Leukopenia [Not Recovered/Not Resolved]
  - Acute kidney injury [Not Recovered/Not Resolved]

NARRATIVE: CASE EVENT DATE: 20191218
